FAERS Safety Report 10759971 (Version 2)
Quarter: 2015Q1

REPORT INFORMATION
  Report Type: Report from Study
  Country: FR (occurrence: FR)
  Receive Date: 20150203
  Receipt Date: 20150216
  Transmission Date: 20150721
  Serious: Yes (Hospitalization)
  Sender: FDA-Public Use
  Company Number: PHHY2015FR009714

PATIENT
  Age: 18 Year
  Sex: Female
  Weight: 60 kg

DRUGS (5)
  1. HYDROCORTISONE HEMISUCCINATE [Concomitant]
     Active Substance: HYDROCORTISONE HEMISUCCINATE
     Indication: PRODUCT USED FOR UNKNOWN INDICATION
     Dosage: 100 MG
     Route: 065
  2. POLARAMINE [Concomitant]
     Active Substance: DEXCHLORPHENIRAMINE MALEATE
     Indication: PRODUCT USED FOR UNKNOWN INDICATION
     Route: 065
  3. ATGAM [Suspect]
     Active Substance: EQUINE THYMOCYTE IMMUNE GLOBULIN
     Indication: BONE MARROW FAILURE
     Dosage: 2400 UG, QD
     Route: 042
     Dates: start: 20140821, end: 20140824
  4. SOLU-MEDROL [Suspect]
     Active Substance: METHYLPREDNISOLONE SODIUM SUCCINATE
     Indication: APLASTIC ANAEMIA
     Route: 042
     Dates: start: 20140820, end: 20140923
  5. NEORAL [Suspect]
     Active Substance: CYCLOSPORINE
     Indication: APLASTIC ANAEMIA
     Dosage: 150 MG, BID
     Route: 048
     Dates: start: 20140814

REACTIONS (4)
  - Tachycardia [Recovered/Resolved]
  - Pericarditis [Recovered/Resolved]
  - Hypertension [Recovered/Resolved]
  - Palpitations [Recovered/Resolved]

NARRATIVE: CASE EVENT DATE: 20140907
